FAERS Safety Report 7981650-2 (Version None)
Quarter: 2011Q4

REPORT INFORMATION
  Report Type: 
  Country: None (occurrence: None)
  Receive Date: 20111215
  Receipt Date: 20111207
  Transmission Date: 20120403
  Serious: Yes (Other)
  Sender: FDA-Public Use
  Company Number: US-US-EMD SERONO, INC.-7100626

PATIENT
  Sex: Female

DRUGS (2)
  1. REBIF [Suspect]
     Indication: PRODUCT USED FOR UNKNOWN INDICATION
     Route: 058
     Dates: start: 20110930
  2. NUVIGIL [Concomitant]
     Indication: FATIGUE

REACTIONS (4)
  - HEADACHE [None]
  - NECK MASS [None]
  - STRESS [None]
  - INJECTION SITE HAEMATOMA [None]
